FAERS Safety Report 21309104 (Version 1)
Quarter: 2022Q3

REPORT INFORMATION
  Report Type: Spontaneous
  Country: US (occurrence: US)
  Receive Date: 20220908
  Receipt Date: 20220908
  Transmission Date: 20221027
  Serious: Yes (Disabling, Other)
  Sender: FDA-Public Use
  Company Number: US-009507513-2205USA000750

PATIENT
  Sex: Female

DRUGS (6)
  1. ZOSTAVAX [Suspect]
     Active Substance: VARICELLA-ZOSTER VIRUS STRAIN OKA/MERCK LIVE ANTIGEN
     Indication: Routine health maintenance
     Route: 065
     Dates: start: 20131003
  2. ZOSTAVAX [Suspect]
     Active Substance: VARICELLA-ZOSTER VIRUS STRAIN OKA/MERCK LIVE ANTIGEN
     Indication: Prophylaxis
  3. STERILE DILUENT (WATER) [Suspect]
     Active Substance: WATER
     Dosage: UNK
     Dates: start: 20131003
  4. ASPIRIN [Concomitant]
     Active Substance: ASPIRIN
     Indication: Cardiac disorder
     Dosage: 81 MILLIGRAM
     Dates: start: 1990
  5. CRESTOR [Concomitant]
     Active Substance: ROSUVASTATIN CALCIUM
     Indication: Blood cholesterol increased
     Dosage: 20 MILLIGRAM
     Dates: start: 1978
  6. PROPRANOLOL HYDROCHLORIDE [Concomitant]
     Active Substance: PROPRANOLOL HYDROCHLORIDE
     Indication: Migraine
     Dosage: 40 MILLIGRAM
     Dates: start: 1990

REACTIONS (15)
  - Post herpetic neuralgia [Not Recovered/Not Resolved]
  - Spinal operation [Unknown]
  - Neuropathy peripheral [Unknown]
  - Herpes zoster reactivation [Not Recovered/Not Resolved]
  - Fibromyalgia [Not Recovered/Not Resolved]
  - Depression [Unknown]
  - Influenza [Unknown]
  - Aortic aneurysm [Not Recovered/Not Resolved]
  - Sciatica [Not Recovered/Not Resolved]
  - Arthritis [Not Recovered/Not Resolved]
  - Gastrooesophageal reflux disease [Not Recovered/Not Resolved]
  - Peripheral vascular disorder [Unknown]
  - Urinary tract infection [Unknown]
  - Vitamin B12 deficiency [Unknown]
  - Breast pain [Unknown]

NARRATIVE: CASE EVENT DATE: 20131017
